FAERS Safety Report 24291522 (Version 1)
Quarter: 2024Q3

REPORT INFORMATION
  Report Type: Spontaneous
  Country: US (occurrence: None)
  Receive Date: 20240906
  Receipt Date: 20240906
  Transmission Date: 20241017
  Serious: No
  Sender: DOMPE FARMACEUTICI
  Company Number: US-FARMAPROD-202308-202309-2727

PATIENT
  Sex: Female

DRUGS (25)
  1. OXERVATE [Suspect]
     Active Substance: CENEGERMIN-BKBJ
     Indication: Neurotrophic keratopathy
     Route: 047
     Dates: start: 20230815
  2. MELATONIN [Concomitant]
     Active Substance: MELATONIN
  3. DIETARY SUPPLEMENT [Concomitant]
     Active Substance: DIETARY SUPPLEMENT
  4. VITAMIN A [Concomitant]
     Active Substance: VITAMIN A
  5. PRASTERONE [Concomitant]
     Active Substance: PRASTERONE
  6. IODINE [Concomitant]
     Active Substance: IODINE
     Dosage: CRYSTALS
  7. .ALPHA.-TOCOPHEROL SUCCINATE, D- [Concomitant]
     Active Substance: .ALPHA.-TOCOPHEROL SUCCINATE, D-
  8. ZINC [Concomitant]
     Active Substance: ZINC
  9. MANGANESE GLUCONATE [Concomitant]
     Active Substance: MANGANESE GLUCONATE
  10. PANCREAZE [Concomitant]
     Active Substance: PANCRELIPASE AMYLASE\PANCRELIPASE LIPASE\PANCRELIPASE PROTEASE
     Dosage: 37 K-97.3 K
  11. BETAINE HCL [Concomitant]
  12. SELENIUM [Concomitant]
     Active Substance: SELENIUM
  13. MOLYBDENUM [Concomitant]
     Active Substance: MOLYBDENUM
  14. VITAMIN B COMPLEX [Concomitant]
     Active Substance: CYANOCOBALAMIN\DEXPANTHENOL\NIACINAMIDE\PYRIDOXINE HYDROCHLORIDE\RIBOFLAVIN 5^-PHOSPHATE SODIUM\THIA
  15. VITAMIN C [Concomitant]
     Active Substance: ASCORBIC ACID
  16. SYSTANE (HYPROMELLOSE 2910 (4000 MPA.S)) [Concomitant]
     Active Substance: HYPROMELLOSE 2910 (4000 MPA.S)
     Dosage: 0.3 %-0.4%
  17. CEQUA [Concomitant]
     Active Substance: CYCLOSPORINE
  18. ESTRACE [Concomitant]
     Active Substance: ESTRADIOL
  19. MAG-OXIDE MAGNESIUM [Concomitant]
  20. ARMOUR THYROID [Concomitant]
     Active Substance: THYROID, PORCINE
  21. MUPIROCIN [Concomitant]
     Active Substance: MUPIROCIN
  22. CALCIPOTRIENE [Concomitant]
     Active Substance: CALCIPOTRIENE
  23. IBUPROFEN [Concomitant]
     Active Substance: IBUPROFEN
  24. VITAMIN D3 [Concomitant]
     Active Substance: CHOLECALCIFEROL
  25. MAGNESIUM OXIDE [Concomitant]
     Active Substance: MAGNESIUM OXIDE

REACTIONS (3)
  - Eye irritation [Not Recovered/Not Resolved]
  - Dry eye [Not Recovered/Not Resolved]
  - Hordeolum [Unknown]
